FAERS Safety Report 18533890 (Version 1)
Quarter: 2020Q4

REPORT INFORMATION
  Report Type: Spontaneous
  Country: FR (occurrence: FR)
  Receive Date: 20201123
  Receipt Date: 20201123
  Transmission Date: 20210114
  Serious: Yes (Death)
  Sender: FDA-Public Use
  Company Number: FR-009507513-2011FRA012229

PATIENT
  Age: 69 Year
  Sex: Male
  Weight: 63 kg

DRUGS (1)
  1. KEYTRUDA [Suspect]
     Active Substance: PEMBROLIZUMAB
     Indication: TRANSITIONAL CELL CARCINOMA
     Dosage: 200 MILLIGRAM, QD
     Route: 042
     Dates: start: 20201005, end: 20201005

REACTIONS (4)
  - Cardio-respiratory arrest [Fatal]
  - Malaise [Fatal]
  - Headache [Fatal]
  - Chest pain [Fatal]

NARRATIVE: CASE EVENT DATE: 20201005
